FAERS Safety Report 6633883-5 (Version None)
Quarter: 2010Q1

REPORT INFORMATION
  Report Type: 
  Country: None (occurrence: None)
  Receive Date: 20100309
  Receipt Date: 20100223
  Transmission Date: 20100710
  Serious: Yes (Hospitalization)
  Sender: FDA-Public Use
  Company Number: 1-21739421

PATIENT
  Sex: Male

DRUGS (1)
  1. TRETINOIN [Suspect]
     Indication: ACNE
     Dosage: THIN LAYER, ONCE DAILY, TOPICAL
     Route: 061

REACTIONS (1)
  - NEUROPATHY PERIPHERAL [None]
